FAERS Safety Report 12197734 (Version 1)
Quarter: 2016Q1

REPORT INFORMATION
  Report Type: Spontaneous
  Country: US (occurrence: US)
  Receive Date: 20160322
  Receipt Date: 20160322
  Transmission Date: 20160526
  Serious: Yes (Hospitalization)
  Sender: FDA-Public Use
  Company Number: US-BEH-2016060207

PATIENT
  Age: 5 Year
  Sex: Male
  Weight: 13 kg

DRUGS (6)
  1. CEPHALEXIN. [Concomitant]
     Active Substance: CEPHALEXIN
  2. LIDOCAINE/PRILOCAINE [Concomitant]
  3. HIZENTRA [Suspect]
     Active Substance: HUMAN IMMUNOGLOBULIN G
     Indication: IMMUNODEFICIENCY
     Dosage: STRENGTH OF DOSAGE FORM: 1 GM 5ML VIAL
     Route: 058
  4. DIPHENHYDRAMINE. [Concomitant]
     Active Substance: DIPHENHYDRAMINE
  5. EPIPEN JR [Concomitant]
     Active Substance: EPINEPHRINE
  6. AMOXICILLIN. [Concomitant]
     Active Substance: AMOXICILLIN

REACTIONS (2)
  - Wheezing [Unknown]
  - Eye infection [Unknown]

NARRATIVE: CASE EVENT DATE: 20160204
